FAERS Safety Report 16729766 (Version 2)
Quarter: 2019Q4

REPORT INFORMATION
  Report Type: Spontaneous
  Country: US (occurrence: US)
  Receive Date: 20190822
  Receipt Date: 20191024
  Transmission Date: 20200122
  Serious: No
  Sender: FDA-Public Use
  Company Number: US-PFIZER INC-2019320552

PATIENT
  Age: 91 Year
  Sex: Female
  Weight: 77.98 kg

DRUGS (1)
  1. LYRICA [Suspect]
     Active Substance: PREGABALIN
     Indication: PAIN IN EXTREMITY
     Dosage: 25 MG, 1X/DAY (TAKE 1 CAP BY MOUTH NIGHTLY)
     Route: 048
     Dates: start: 20190729, end: 20190830

REACTIONS (1)
  - Drug ineffective [Not Recovered/Not Resolved]
